FAERS Safety Report 7323783-X (Version None)
Quarter: 2011Q1

REPORT INFORMATION
  Report Type: 
  Country: None (occurrence: None)
  Receive Date: 20110301
  Receipt Date: 20110215
  Transmission Date: 20110831
  Serious: No
  Sender: FDA-Public Use
  Company Number: US-JNJFOC-20110205004

PATIENT
  Sex: Female
  Weight: 90.72 kg

DRUGS (3)
  1. INVEGA [Suspect]
     Indication: SCHIZOAFFECTIVE DISORDER
     Route: 048
  2. LEVOTHYROXINE SODIUM [Concomitant]
     Indication: HYPOTHYROIDISM
     Route: 048
  3. ATIVAN [Concomitant]
     Indication: ANXIETY
     Route: 048

REACTIONS (4)
  - MUSCULOSKELETAL STIFFNESS [None]
  - MUSCLE TWITCHING [None]
  - SOMNOLENCE [None]
  - PALPITATIONS [None]
